FAERS Safety Report 5660437-X (Version None)
Quarter: 2008Q1

REPORT INFORMATION
  Report Type: 
  Country: None (occurrence: None)
  Receive Date: 20080311
  Receipt Date: 20071026
  Transmission Date: 20080703
  Serious: No
  Sender: FDA-Public Use
  Company Number: US-BAYER-200713505BCC

PATIENT
  Age: 37 Year
  Sex: Female
  Weight: 88 kg

DRUGS (5)
  1. ALEVE [Suspect]
     Indication: MENSTRUAL DISORDER
     Route: 048
  2. MIDOL [Suspect]
     Indication: MENSTRUAL DISORDER
     Route: 048
     Dates: start: 20070801
  3. VITAMIN E [Concomitant]
  4. GARLIC [Concomitant]
  5. GINGER ROOT [Concomitant]

REACTIONS (1)
  - MENSTRUAL DISORDER [None]
